FAERS Safety Report 12522899 (Version 4)
Quarter: 2016Q3

REPORT INFORMATION
  Report Type: Spontaneous
  Country: CN (occurrence: CN)
  Receive Date: 20160701
  Receipt Date: 20160728
  Transmission Date: 20161109
  Serious: Yes (Hospitalization)
  Sender: FDA-Public Use
  Company Number: CN-ASTRAZENECA-2016SE71189

PATIENT
  Age: 80 Year
  Sex: Male

DRUGS (17)
  1. BETALOC ZOK [Suspect]
     Active Substance: METOPROLOL SUCCINATE
     Indication: HYPERTENSION
     Route: 048
     Dates: start: 2014
  2. BETALOC ZOK [Suspect]
     Active Substance: METOPROLOL SUCCINATE
     Indication: ARRHYTHMIA
     Route: 048
     Dates: start: 2014
  3. PROCARDIN [Concomitant]
     Indication: HYPERTENSION
  4. PLENDIL [Suspect]
     Active Substance: FELODIPINE
     Indication: ANGINA PECTORIS
     Route: 048
     Dates: start: 201606
  5. BETALOC [Suspect]
     Active Substance: METOPROLOL TARTRATE
     Indication: HYPERTENSION
     Route: 048
  6. BETALOC [Suspect]
     Active Substance: METOPROLOL TARTRATE
     Indication: ARRHYTHMIA
     Route: 048
  7. PLENDIL [Suspect]
     Active Substance: FELODIPINE
     Indication: HYPERTENSION
     Route: 048
     Dates: start: 2016
  8. PLENDIL [Suspect]
     Active Substance: FELODIPINE
     Indication: ANGINA PECTORIS
     Route: 048
     Dates: start: 2016
  9. BETALOC [Suspect]
     Active Substance: METOPROLOL TARTRATE
     Indication: ARRHYTHMIA
     Dosage: 6.25 MG (1/4*25 MG TAB) 3 OR 4 TIMES IN A DAY
     Route: 048
     Dates: start: 201606
  10. BETALOC [Suspect]
     Active Substance: METOPROLOL TARTRATE
     Indication: HYPERTENSION
     Dosage: 6.25 MG (1/4*25 MG TAB) WHEN HEART RATE CONTROL WAS NOT GOOD (TOOK ONLY WHEN NEEDED)
     Route: 048
     Dates: start: 2014
  11. PLENDIL [Suspect]
     Active Substance: FELODIPINE
     Indication: ANGINA PECTORIS
     Route: 048
     Dates: start: 201606, end: 201606
  12. PLENDIL [Suspect]
     Active Substance: FELODIPINE
     Indication: ANGINA PECTORIS
     Dosage: 5.0MG UNKNOWN
     Route: 048
  13. BETALOC [Suspect]
     Active Substance: METOPROLOL TARTRATE
     Indication: ARRHYTHMIA
     Dosage: 6.25 MG (1/4*25 MG TAB) WHEN HEART RATE CONTROL WAS NOT GOOD (TOOK ONLY WHEN NEEDED)
     Route: 048
     Dates: start: 2014
  14. BETALOC [Suspect]
     Active Substance: METOPROLOL TARTRATE
     Indication: HYPERTENSION
     Dosage: 6.25 MG (1/4*25 MG TAB) 3 OR 4 TIMES IN A DAY
     Route: 048
     Dates: start: 201606
  15. PLENDIL [Suspect]
     Active Substance: FELODIPINE
     Indication: HYPERTENSION
     Dosage: 5.0MG UNKNOWN
     Route: 048
  16. PLENDIL [Suspect]
     Active Substance: FELODIPINE
     Indication: HYPERTENSION
     Route: 048
     Dates: start: 201606, end: 201606
  17. PLENDIL [Suspect]
     Active Substance: FELODIPINE
     Indication: HYPERTENSION
     Route: 048
     Dates: start: 201606

REACTIONS (10)
  - Atrial fibrillation [Unknown]
  - Hypertension [Unknown]
  - Arrhythmia [Unknown]
  - Pyrexia [Unknown]
  - Angina pectoris [Unknown]
  - Drug ineffective [Unknown]
  - Intentional product misuse [Unknown]
  - Hypotension [Unknown]
  - Heart rate decreased [Unknown]
  - Heart rate irregular [Unknown]
